FAERS Safety Report 23442378 (Version 1)
Quarter: 2024Q1

REPORT INFORMATION
  Report Type: Spontaneous
  Country: GB (occurrence: GB)
  Receive Date: 20240125
  Receipt Date: 20240125
  Transmission Date: 20240410
  Serious: Yes (Other)
  Sender: FDA-Public Use
  Company Number: GB-SUN PHARMACEUTICAL INDUSTRIES LTD-2024R1-428407

PATIENT
  Sex: Male

DRUGS (2)
  1. ERTAPENEM [Suspect]
     Active Substance: ERTAPENEM
     Indication: Antibiotic therapy
     Dosage: 1 GRAM, QD
     Route: 065
  2. CARBIMAZOLE [Concomitant]
     Active Substance: CARBIMAZOLE
     Indication: Hyperthyroidism
     Dosage: 10 MILLIGRAM, QD
     Route: 065

REACTIONS (1)
  - Toxic encephalopathy [Recovered/Resolved]
